FAERS Safety Report 20950499 (Version 2)
Quarter: 2022Q3

REPORT INFORMATION
  Report Type: Spontaneous
  Country: US (occurrence: US)
  Receive Date: 20220613
  Receipt Date: 20220723
  Transmission Date: 20221027
  Serious: Yes (Life-Threatening, Hospitalization, Other)
  Sender: FDA-Public Use
  Company Number: US-drreddys-SPO/USA/22/0151082

PATIENT
  Age: 79 Year
  Sex: Female

DRUGS (2)
  1. DEXAMETHASONE [Suspect]
     Active Substance: DEXAMETHASONE
     Indication: COVID-19 treatment
  2. REMDESIVIR [Suspect]
     Active Substance: REMDESIVIR
     Indication: COVID-19 treatment

REACTIONS (4)
  - Condition aggravated [Recovered/Resolved]
  - Sinus bradycardia [Recovered/Resolved]
  - Sinus node dysfunction [Recovered/Resolved]
  - Cardiac arrest [Recovered/Resolved]
